FAERS Safety Report 7998769-2 (Version None)
Quarter: 2011Q4

REPORT INFORMATION
  Report Type: 
  Country: None (occurrence: None)
  Receive Date: 20111221
  Receipt Date: 20111213
  Transmission Date: 20120403
  Serious: Yes (Hospitalization)
  Sender: FDA-Public Use
  Company Number: US-ABBOTT-11P-163-0883172-00

PATIENT
  Age: 42 Year
  Sex: Female

DRUGS (6)
  1. HUMIRA [Suspect]
     Indication: RHEUMATOID ARTHRITIS
     Dates: end: 20111101
  2. CLINDAMYCIN [Suspect]
     Indication: CELLULITIS
  3. SULFADIAZINE [Suspect]
     Indication: CELLULITIS
  4. UNKNOWN MEDICATION [Concomitant]
     Indication: PRODUCT USED FOR UNKNOWN INDICATION
  5. VANCOMYCIN [Concomitant]
     Indication: CELLULITIS
  6. UNKNOWN ANTIBIOTIC [Concomitant]
     Indication: PRODUCT USED FOR UNKNOWN INDICATION

REACTIONS (5)
  - CELLULITIS [None]
  - HEART RATE INCREASED [None]
  - HYPERSENSITIVITY [None]
  - URTICARIA [None]
  - PYREXIA [None]
